FAERS Safety Report 6626675-4 (Version None)
Quarter: 2010Q1

REPORT INFORMATION
  Report Type: 
  Country: None (occurrence: None)
  Receive Date: 20100308
  Receipt Date: 20100222
  Transmission Date: 20100710
  Serious: Yes (Life-Threatening, Hospitalization)
  Sender: FDA-Public Use
  Company Number: DAV-AE-MTX-10-004

PATIENT
  Age: 48 Year
  Sex: Female
  Weight: 99 kg

DRUGS (4)
  1. METHOTREXATE SODIUM [Suspect]
     Indication: RHEUMATOID ARTHRITIS
     Dosage: 15 MG/WKLY
     Dates: start: 20000801
  2. VASOTEC [Concomitant]
  3. FOLIC ACID [Concomitant]
  4. BLINDED [Concomitant]

REACTIONS (32)
  - AMYLOIDOSIS [None]
  - ARTHRALGIA [None]
  - ASTHENIA [None]
  - BILIARY TRACT DISORDER [None]
  - BONE DISORDER [None]
  - BONE PAIN [None]
  - C-REACTIVE PROTEIN INCREASED [None]
  - CHOLECYSTITIS CHRONIC [None]
  - CHOLECYSTITIS INFECTIVE [None]
  - GALLBLADDER DISORDER [None]
  - HEPATIC STEATOSIS [None]
  - HEPATOSPLENOMEGALY [None]
  - HYPOTONIA [None]
  - IMMUNOSUPPRESSION [None]
  - JOINT RANGE OF MOTION DECREASED [None]
  - LEUKOCYTOSIS [None]
  - LIVER FUNCTION TEST ABNORMAL [None]
  - MOBILITY DECREASED [None]
  - MUSCULOSKELETAL STIFFNESS [None]
  - NAUSEA [None]
  - NO THERAPEUTIC RESPONSE [None]
  - OSTEOCHONDROSIS [None]
  - OSTEOPOROSIS [None]
  - OSTEOPOROTIC FRACTURE [None]
  - PORTAL HYPERTENSION [None]
  - PURPURA [None]
  - PYREXIA [None]
  - SEPSIS [None]
  - SPINAL OSTEOARTHRITIS [None]
  - THORACIC VERTEBRAL FRACTURE [None]
  - THROMBOCYTOPENIA [None]
  - VOMITING [None]
